FAERS Safety Report 4878996-3 (Version None)
Quarter: 2006Q1

REPORT INFORMATION
  Report Type: 
  Country: None (occurrence: None)
  Receive Date: 20060110
  Receipt Date: 20060110
  Transmission Date: 20060701
  Serious: Yes (Hospitalization, Other)
  Sender: FDA-Public Use
  Company Number: None

PATIENT
  Sex: Male
  Weight: 76.4 kg

DRUGS (6)
  1. CYCLOPHOSPHAMIDE [Suspect]
     Indication: ACUTE MYELOID LEUKAEMIA
     Dosage: SEE IMAGE
     Route: 042
     Dates: start: 20051221, end: 20051221
  2. DAUNORUBICIN [Suspect]
     Dosage: SEE IMAGE
     Route: 042
     Dates: end: 20051223
  3. DEXAMETHASONE TAB [Suspect]
     Dosage: SEE IMAGE
     Route: 048
     Dates: end: 20051230
  4. G-CSF [Suspect]
     Dosage: SEE IMAGE
     Route: 058
     Dates: end: 20060105
  5. ELSPAR [Suspect]
     Dosage: SEE IMAGE
     Route: 058
     Dates: end: 20051230
  6. VINCRISTINE SULFATE [Suspect]
     Dosage: SEE IMAGE
     Route: 042
     Dates: end: 20051228

REACTIONS (6)
  - ANOREXIA [None]
  - EYE PAIN [None]
  - HEADACHE [None]
  - MIDDLE INSOMNIA [None]
  - SUPERIOR SAGITTAL SINUS THROMBOSIS [None]
  - VOMITING [None]
